FAERS Safety Report 7968797-1 (Version None)
Quarter: 2011Q4

REPORT INFORMATION
  Report Type: 
  Country: None (occurrence: None)
  Receive Date: 20111208
  Receipt Date: 20111125
  Transmission Date: 20120403
  Serious: Yes (Hospitalization)
  Sender: FDA-Public Use
  Company Number: 2011CP000193

PATIENT
  Age: 24 Year
  Sex: Male

DRUGS (3)
  1. IMIPENEM (IMIPENEM) [Suspect]
     Dosage: 1 DOSAGE FORM; 3 DAY;IV
     Route: 042
     Dates: start: 20110916, end: 20111007
  2. ACETAMINOPHEN [Suspect]
     Dosage: 1 DOSAGE FORM; 4 DAY; IV
     Route: 042
     Dates: end: 20111007
  3. ESOMEPRAZOLE MAGNESIUM [Suspect]
     Dosage: 20 MG;1/1 DAY
     Dates: start: 20110916, end: 20111007

REACTIONS (5)
  - AGRANULOCYTOSIS [None]
  - PNEUMONIA [None]
  - MUSCLE SPASMS [None]
  - ENTEROCOCCUS TEST POSITIVE [None]
  - BACTERIURIA [None]
